FAERS Safety Report 7482805-6 (Version None)
Quarter: 2011Q2

REPORT INFORMATION
  Report Type: 
  Country: None (occurrence: None)
  Receive Date: 20110516
  Receipt Date: 20110121
  Transmission Date: 20111010
  Serious: No
  Sender: FDA-Public Use
  Company Number: US-BAYER-2011-007938

PATIENT
  Sex: Female

DRUGS (1)
  1. ALEVE (CAPLET) [Suspect]
     Indication: ARTHRALGIA
     Dosage: CONSUMER HAS BEEN USED THE PRODUCT REGULARLY FOR OVER 10 YEARS. BOTTLE COUNT WAS NOT REPORTED.

REACTIONS (1)
  - NO ADVERSE EVENT [None]
